FAERS Safety Report 7552143-1 (Version None)
Quarter: 2011Q2

REPORT INFORMATION
  Report Type: 
  Country: None (occurrence: None)
  Receive Date: 20110616
  Receipt Date: 20110531
  Transmission Date: 20111010
  Serious: Yes (Hospitalization, Other)
  Sender: FDA-Public Use
  Company Number: US-BAYER-201022873NA

PATIENT
  Sex: Female
  Weight: 54.422 kg

DRUGS (8)
  1. YASMIN [Suspect]
     Indication: PREMENSTRUAL SYNDROME
     Route: 048
  2. FAMVIR [Concomitant]
  3. PREDNISONE [Concomitant]
  4. ZOLPIDEM [Concomitant]
  5. OMEPRAZOLE [Concomitant]
  6. MOUTHWASH: +#8220; HYDROCOR-NYS-TCN+#8221; [Concomitant]
  7. PRILOSEC [Concomitant]
  8. ACETASOL HC [Concomitant]

REACTIONS (4)
  - CHOLECYSTITIS CHRONIC [None]
  - PAIN [None]
  - BILIARY COLIC [None]
  - CHOLELITHIASIS [None]
